FAERS Safety Report 15367975 (Version 5)
Quarter: 2018Q4

REPORT INFORMATION
  Report Type: Report from Study
  Country: BR (occurrence: BR)
  Receive Date: 20180910
  Receipt Date: 20181012
  Transmission Date: 20190204
  Serious: Yes (Death, Hospitalization)
  Sender: FDA-Public Use
  Company Number: PHHO2018BR010059

PATIENT
  Age: 60 Year
  Sex: Female
  Weight: 107 kg

DRUGS (3)
  1. ACZ885 [Suspect]
     Active Substance: CANAKINUMAB
     Indication: CARDIOVASCULAR EVENT PROPHYLAXIS
     Dosage: 300 MG, (QUARTERLY)
     Route: 058
  2. ACZ885 [Suspect]
     Active Substance: CANAKINUMAB
     Indication: CARDIOVASCULAR EVENT PROPHYLAXIS
     Dosage: 150 MG/ML
     Route: 058
     Dates: start: 20180608, end: 20180608
  3. XARELTO [Concomitant]
     Active Substance: RIVAROXABAN
     Indication: PRODUCT USED FOR UNKNOWN INDICATION
     Dosage: PO/DAY
     Route: 048
     Dates: start: 2016

REACTIONS (3)
  - Haematoma [Recovered/Resolved]
  - Pneumonia klebsiella [Fatal]
  - Skin laceration [Recovered/Resolved]

NARRATIVE: CASE EVENT DATE: 20180804
